FAERS Safety Report 18135964 (Version 1)
Quarter: 2020Q3

REPORT INFORMATION
  Report Type: Spontaneous
  Country: US (occurrence: US)
  Receive Date: 20200811
  Receipt Date: 20200811
  Transmission Date: 20201103
  Serious: No
  Sender: FDA-Public Use
  Company Number: US-ASCEND THERAPEUTICS US, LLC-2088467

PATIENT
  Sex: Female

DRUGS (2)
  1. ESTROGEL [Suspect]
     Active Substance: ESTRADIOL
     Indication: PRODUCT USED FOR UNKNOWN INDICATION
  2. ESTROGEL [Suspect]
     Active Substance: ESTRADIOL

REACTIONS (1)
  - Skin reaction [Unknown]
